FAERS Safety Report 12261072 (Version 2)
Quarter: 2016Q2

REPORT INFORMATION
  Report Type: Spontaneous
  Country: US (occurrence: US)
  Receive Date: 20160412
  Receipt Date: 20160516
  Transmission Date: 20160815
  Serious: Yes (Hospitalization)
  Sender: FDA-Public Use
  Company Number: US-UNITED THERAPEUTICS-UNT-2016-005587

PATIENT
  Age: 68 Year
  Sex: Female
  Weight: 87.98 kg

DRUGS (3)
  1. OPSUMIT [Concomitant]
     Active Substance: MACITENTAN
     Indication: PRODUCT USED FOR UNKNOWN INDICATION
     Dosage: UNK
  2. REMODULIN [Suspect]
     Active Substance: TREPROSTINIL
     Dosage: UNK
     Dates: start: 20151207
  3. REMODULIN [Suspect]
     Active Substance: TREPROSTINIL
     Indication: PULMONARY ARTERIAL HYPERTENSION
     Dosage: 0.0683 ?G/KG, CONTINUING
     Route: 058
     Dates: start: 20150603

REACTIONS (6)
  - Device issue [Unknown]
  - Hypotension [Unknown]
  - Loss of consciousness [Recovered/Resolved]
  - Drug dose omission [Unknown]
  - Disorientation [Not Recovered/Not Resolved]
  - Catheter site haemorrhage [Recovered/Resolved]

NARRATIVE: CASE EVENT DATE: 20160403
